FAERS Safety Report 23380755 (Version 1)
Quarter: 2024Q1

REPORT INFORMATION
  Report Type: Spontaneous
  Country: ES (occurrence: ES)
  Receive Date: 20240109
  Receipt Date: 20240109
  Transmission Date: 20240410
  Serious: Yes (Life-Threatening, Hospitalization, Other)
  Sender: FDA-Public Use
  Company Number: ES-AEMPS-1466808

PATIENT
  Age: 88 Year
  Sex: Male

DRUGS (4)
  1. MEROPENEM [Suspect]
     Active Substance: MEROPENEM
     Indication: Cholecystitis
     Dosage: 1 GRAM, 3 TIMES A DAY
     Route: 042
     Dates: start: 20230627, end: 20230705
  2. AMOXICILLIN\CLAVULANIC ACID [Suspect]
     Active Substance: AMOXICILLIN\CLAVULANIC ACID
     Indication: Cholangitis
     Dosage: UNK
     Route: 042
     Dates: start: 20230622, end: 20230705
  3. FLUCONAZOLE [Suspect]
     Active Substance: FLUCONAZOLE
     Indication: Cholangitis
     Dosage: 200 MILLIGRAM, 3 TIMES A DAY
     Route: 042
     Dates: start: 20230627, end: 20230705
  4. PIPERACILLIN AND TAZOBACTAM [Suspect]
     Active Substance: PIPERACILLIN SODIUM\TAZOBACTAM SODIUM
     Indication: Cholecystitis
     Dosage: 1 DOSAGE FORM, 3 TIMES A DAY
     Route: 042
     Dates: start: 20230622, end: 20230627

REACTIONS (1)
  - Clostridium difficile colitis [Recovered/Resolved]

NARRATIVE: CASE EVENT DATE: 20230707
